FAERS Safety Report 13898225 (Version 2)
Quarter: 2017Q3

REPORT INFORMATION
  Report Type: Report from Study
  Country: US (occurrence: US)
  Receive Date: 20170823
  Receipt Date: 20170830
  Transmission Date: 20171127
  Serious: Yes (Other)
  Sender: FDA-Public Use
  Company Number: PHEH2017US026242

PATIENT
  Sex: Male

DRUGS (2)
  1. MORPHINE [Interacting]
     Active Substance: MORPHINE
     Indication: PAIN
     Route: 065
  2. SANDOSTATIN LAR DEPOT [Suspect]
     Active Substance: OCTREOTIDE ACETATE
     Indication: CARCINOID SYNDROME
     Route: 065

REACTIONS (18)
  - Spinal cord neoplasm [Unknown]
  - Skin lesion [Unknown]
  - Neoplasm [Unknown]
  - Hypersomnia [Unknown]
  - Depression [Unknown]
  - Hepatic neoplasm [Unknown]
  - Constipation [Unknown]
  - Flushing [Unknown]
  - Skin exfoliation [Unknown]
  - Arthralgia [Unknown]
  - Bowel movement irregularity [Unknown]
  - Injection site pain [Unknown]
  - Pain [Unknown]
  - Movement disorder [Unknown]
  - Joint swelling [Unknown]
  - Pyrexia [Unknown]
  - Crepitations [Unknown]
  - Musculoskeletal stiffness [Unknown]
